FAERS Safety Report 20752972 (Version 2)
Quarter: 2023Q2

REPORT INFORMATION
  Report Type: Spontaneous
  Country: US (occurrence: None)
  Receive Date: 20220426
  Receipt Date: 20230420
  Transmission Date: 20230721
  Serious: No
  Sender: FDA-Public Use
  Company Number: US-ROCHE-2974333

PATIENT
  Age: 74 Year
  Sex: Female
  Weight: 70.370 kg

DRUGS (12)
  1. ESBRIET [Suspect]
     Active Substance: PIRFENIDONE
     Indication: Idiopathic pulmonary fibrosis
     Dosage: NO
     Route: 048
     Dates: start: 20211118, end: 20211125
  2. ESBRIET [Suspect]
     Active Substance: PIRFENIDONE
     Dosage: TOOK TWO 267MG TABLETS THREE TIMES A DAY ;ONGOING: NO
     Route: 048
     Dates: start: 20211126, end: 20211201
  3. ESBRIET [Suspect]
     Active Substance: PIRFENIDONE
     Dosage: TAKES THREE 267MG TABLETS THREE TIMES A DAY ;ONGOING: YES
     Route: 048
     Dates: start: 20211202
  4. ESBRIET [Suspect]
     Active Substance: PIRFENIDONE
     Dosage: TAKE 534 MG TABLETS THREE TIMES A DAY, ONGOING: YES
     Route: 048
     Dates: start: 20211222
  5. SIMVASTATIN [Concomitant]
     Active Substance: SIMVASTATIN
     Route: 048
  6. AMLODIPINE [Concomitant]
     Active Substance: AMLODIPINE BESYLATE
     Route: 048
  7. ISOSORBIDE [Concomitant]
     Active Substance: ISOSORBIDE
     Route: 048
  8. HYDROCHLOROTHIAZIDE [Concomitant]
     Active Substance: HYDROCHLOROTHIAZIDE
     Route: 048
  9. LOSARTAN [Concomitant]
     Active Substance: LOSARTAN
     Route: 048
  10. METOPROLOL [Concomitant]
     Active Substance: METOPROLOL
     Route: 048
  11. TYLENOL [Concomitant]
     Active Substance: ACETAMINOPHEN
     Dosage: 1-2 AS NEEDED FOR HEADACHES
     Route: 048
  12. PLAVIX [Concomitant]
     Active Substance: CLOPIDOGREL BISULFATE
     Route: 048

REACTIONS (5)
  - Nausea [Unknown]
  - Vomiting [Unknown]
  - Inappropriate schedule of product administration [Unknown]
  - Off label use [Unknown]
  - Cystitis [Unknown]

NARRATIVE: CASE EVENT DATE: 20211202
